FAERS Safety Report 6829507-4 (Version None)
Quarter: 2010Q3

REPORT INFORMATION
  Report Type: 
  Country: None (occurrence: None)
  Receive Date: 20100709
  Receipt Date: 20070324
  Transmission Date: 20110219
  Serious: No
  Sender: FDA-Public Use
  Company Number: US-PFIZER INC-2007012196

PATIENT
  Sex: Male
  Weight: 95.25 kg

DRUGS (9)
  1. CHANTIX [Suspect]
     Indication: SMOKING CESSATION THERAPY
     Route: 048
     Dates: start: 20070207, end: 20070209
  2. NORVIR [Concomitant]
     Indication: HIV INFECTION
  3. REYATAZ [Concomitant]
     Indication: HIV INFECTION
  4. ZIAGEN [Concomitant]
     Indication: HIV INFECTION
  5. EMTRICITABINE [Concomitant]
     Indication: HIV INFECTION
  6. VITAMINS [Concomitant]
  7. LEXAPRO [Concomitant]
     Indication: AFFECTIVE DISORDER
  8. GEMFIBROZIL [Concomitant]
     Indication: BLOOD CHOLESTEROL
  9. VIAGRA [Concomitant]

REACTIONS (4)
  - CONSTIPATION [None]
  - FEELING HOT [None]
  - FLUSHING [None]
  - WEIGHT INCREASED [None]
